FAERS Safety Report 5239809-3 (Version None)
Quarter: 2007Q1

REPORT INFORMATION
  Report Type: 
  Country: None (occurrence: None)
  Receive Date: 20070216
  Receipt Date: 20070207
  Transmission Date: 20070707
  Serious: Yes (Hospitalization)
  Sender: FDA-Public Use
  Company Number: HQWYE916107FEB07

PATIENT
  Age: 86 Year
  Sex: Female

DRUGS (11)
  1. CORDARONE [Suspect]
     Indication: ATRIAL FIBRILLATION
     Route: 048
     Dates: start: 20061028, end: 20061103
  2. CORDARONE [Interacting]
     Indication: ATRIAL FLUTTER
     Route: 048
     Dates: start: 20061101
  3. SOTALOL HCL [Concomitant]
     Indication: ATRIAL FIBRILLATION
     Route: 048
     Dates: start: 20061025, end: 20061109
  4. SOTALOL HCL [Concomitant]
     Indication: ATRIAL FLUTTER
  5. DIGOXIN [Concomitant]
     Route: 048
     Dates: start: 20061105, end: 20061110
  6. DIGOXIN [Concomitant]
     Route: 048
     Dates: start: 20061111
  7. SINTROM [Interacting]
     Indication: ATRIAL FIBRILLATION
     Route: 048
     Dates: start: 20060927, end: 20061117
  8. SINTROM [Interacting]
     Indication: ATRIAL FLUTTER
     Dosage: 0.5 MG 1 DAY OUT OF 2
     Route: 048
     Dates: start: 20061118, end: 20061120
  9. SINTROM [Interacting]
     Dosage: 0.5 MG FOR 2 CONSECUTIVE DAYS, THAN 1 DAY WITHOUT
     Route: 048
     Dates: start: 20061121, end: 20061124
  10. SINTROM [Interacting]
     Route: 048
     Dates: start: 20061125
  11. NEXIUM [Interacting]
     Route: 048

REACTIONS (5)
  - DRUG INTERACTION [None]
  - EPISTAXIS [None]
  - HAEMARTHROSIS [None]
  - INTERNATIONAL NORMALISED RATIO INCREASED [None]
  - VAGINAL HAEMORRHAGE [None]
